FAERS Safety Report 6386451-7 (Version None)
Quarter: 2009Q4

REPORT INFORMATION
  Report Type: 
  Country: None (occurrence: None)
  Receive Date: 20091002
  Receipt Date: 20090513
  Transmission Date: 20100525
  Serious: No
  Sender: FDA-Public Use
  Company Number: US-ASTRAZENECA-2009UW12428

PATIENT
  Age: 82 Year
  Sex: Female
  Weight: 94.3 kg

DRUGS (4)
  1. ARIMIDEX [Suspect]
     Indication: BREAST CANCER
     Route: 048
  2. ATENOLOL [Concomitant]
     Indication: HYPERTENSION
  3. ISOSORBIDE [Concomitant]
     Indication: HYPERTENSION
  4. HYDROCHLOROTHIAZIDE [Concomitant]
     Indication: HYPERTENSION

REACTIONS (5)
  - ARTHRITIS [None]
  - EAR CONGESTION [None]
  - RHINITIS [None]
  - SINUSITIS [None]
  - WEIGHT INCREASED [None]
